FAERS Safety Report 8385167-5 (Version None)
Quarter: 2012Q2

REPORT INFORMATION
  Report Type: 
  Country: None (occurrence: None)
  Receive Date: 20120525
  Receipt Date: 20120516
  Transmission Date: 20120825
  Serious: Yes (Other)
  Sender: FDA-Public Use
  Company Number: BR-AMGEN-BRASP2012031638

PATIENT
  Age: 55 Year

DRUGS (2)
  1. ENBREL [Suspect]
     Indication: PRODUCT USED FOR UNKNOWN INDICATION
     Dosage: 50 MG, WEEKLY
     Dates: start: 20090101
  2. METHOTREXATE SODIUM [Suspect]
     Dosage: UNK
     Dates: start: 20090101

REACTIONS (2)
  - CARDIAC DISORDER [None]
  - INFARCTION [None]
